FAERS Safety Report 21247771 (Version 3)
Quarter: 2023Q2

REPORT INFORMATION
  Report Type: Spontaneous
  Country: US (occurrence: None)
  Receive Date: 20220824
  Receipt Date: 20230627
  Transmission Date: 20230722
  Serious: Yes (Hospitalization, Other)
  Sender: FDA-Public Use
  Company Number: US-Emmaus Medical, Inc.-EMM202204-000058

PATIENT
  Age: 9 Year
  Sex: Female
  Weight: 36.287 kg

DRUGS (17)
  1. ENDARI [Suspect]
     Active Substance: GLUTAMINE
     Indication: Sickle cell disease
     Dosage: 10 GM (TWO PACKETS OF 5 GM EACH BY MOUTH)
     Route: 048
     Dates: start: 201909
  2. ENDARI [Suspect]
     Active Substance: GLUTAMINE
     Dosage: 10 GM (TWO PACKETS OF 5 GM EACH BY MOUTH)
     Route: 048
     Dates: start: 201901
  3. ENDARI [Suspect]
     Active Substance: GLUTAMINE
     Dosage: 10 GM
     Route: 048
     Dates: start: 202208
  4. HYDROXYUREA [Suspect]
     Active Substance: HYDROXYUREA
     Indication: Sickle cell disease
     Dosage: 2 CAPSULES OF 500 MG EACH IN APPLE SAUCE
     Route: 065
  5. AMOXICILLIN [Concomitant]
     Active Substance: AMOXICILLIN
     Indication: Prophylaxis
     Dosage: 500 MG
     Route: 065
  6. CETIRIZINE [Concomitant]
     Active Substance: CETIRIZINE HYDROCHLORIDE
     Indication: Seasonal allergy
     Dosage: UNKNOWN (5MG TO 10MG)
     Route: 065
  7. AMITRIPTYLINE [Concomitant]
     Active Substance: AMITRIPTYLINE
     Indication: Insomnia
     Dosage: UNKNOWN
     Route: 065
  8. Flinstones [Concomitant]
     Indication: Product used for unknown indication
     Dosage: 2 CHEWABLE TABLETS
     Route: 048
  9. Slobent [Concomitant]
     Indication: Asthma
     Dosage: UNKNOWN
     Route: 065
  10. OXYCODONE [Concomitant]
     Active Substance: OXYCODONE
     Indication: Sickle cell disease
     Dosage: UP TO 5MG
     Route: 065
  11. MORPHINE [Concomitant]
     Active Substance: MORPHINE
     Indication: Sickle cell disease
     Dosage: UP TO 2.5 ML
     Route: 065
  12. TYLENOL [Concomitant]
     Active Substance: ACETAMINOPHEN
     Indication: Sickle cell disease
     Dosage: 15 ML
     Route: 065
  13. NAPROXEN [Concomitant]
     Active Substance: NAPROXEN
     Indication: Sickle cell disease
     Dosage: UNKNOWN
     Route: 065
  14. DILAUDID [Concomitant]
     Active Substance: HYDROMORPHONE HYDROCHLORIDE
     Indication: Sickle cell disease
     Dosage: UNKNOWN
     Route: 065
  15. TORADOL [Concomitant]
     Active Substance: KETOROLAC TROMETHAMINE
     Indication: Sickle cell disease
     Dosage: UNKNOWN
     Route: 065
  16. Motrim [Concomitant]
     Indication: Sickle cell disease
     Dosage: UNKNOWN
     Route: 065
  17. TAMIFLU [Concomitant]
     Active Substance: OSELTAMIVIR PHOSPHATE
     Indication: Product used for unknown indication
     Dosage: UNKNOWN
     Route: 065

REACTIONS (6)
  - Influenza [Recovering/Resolving]
  - Pneumonia bacterial [Recovering/Resolving]
  - Sickle cell anaemia with crisis [Recovered/Resolved]
  - Rash [Recovering/Resolving]
  - Nausea [Not Recovered/Not Resolved]
  - Constipation [Not Recovered/Not Resolved]

NARRATIVE: CASE EVENT DATE: 20220101
